FAERS Safety Report 16321496 (Version 2)
Quarter: 2019Q2

REPORT INFORMATION
  Report Type: Spontaneous
  Country: US (occurrence: US)
  Receive Date: 20190516
  Receipt Date: 20190611
  Transmission Date: 20190711
  Serious: No
  Sender: FDA-Public Use
  Company Number: US-009507513-1905USA006356

PATIENT
  Sex: Female

DRUGS (3)
  1. TEMODAR [Suspect]
     Active Substance: TEMOZOLOMIDE
     Indication: BRAIN NEOPLASM MALIGNANT
     Dosage: 140 MILLIGRAM, ONCE DAILY
     Route: 048
     Dates: start: 201812
  2. TEMODAR [Suspect]
     Active Substance: TEMOZOLOMIDE
     Dosage: 340 MILLIGRAM
     Route: 048
     Dates: start: 2019
  3. TEMODAR [Suspect]
     Active Substance: TEMOZOLOMIDE
     Dosage: 140 MILLIGRAM, 2 CAPSULES BY MOUTH AT BED TIME FOR 5 DAYS ON A 28 DAY CYCLE
     Route: 048
     Dates: start: 201905, end: 2019

REACTIONS (1)
  - Fatigue [Not Recovered/Not Resolved]

NARRATIVE: CASE EVENT DATE: 2019
